FAERS Safety Report 23381844 (Version 1)
Quarter: 2024Q1

REPORT INFORMATION
  Report Type: Spontaneous
  Country: None (occurrence: ES)
  Receive Date: 20240109
  Receipt Date: 20240109
  Transmission Date: 20240410
  Serious: No
  Sender: FDA-Public Use
  Company Number: ES-Harrow Eye-2150669

PATIENT
  Sex: Female

DRUGS (1)
  1. VERKAZIA [Suspect]
     Active Substance: CYCLOSPORINE
     Indication: Adenoviral conjunctivitis
     Route: 047

REACTIONS (2)
  - Off label use [None]
  - Multiple use of single-use product [None]
